FAERS Safety Report 5169552-0 (Version None)
Quarter: 2006Q4

REPORT INFORMATION
  Report Type: 
  Country: None (occurrence: None)
  Receive Date: 20061204
  Receipt Date: 20061127
  Transmission Date: 20070319
  Serious: Yes (Other)
  Sender: FDA-Public Use
  Company Number: US-2006-037129

PATIENT
  Age: 19 Year
  Sex: Female
  Weight: 48.5 kg

DRUGS (2)
  1. YAZ [Suspect]
     Indication: ORAL CONTRACEPTION
     Dosage: 1 TAB(S), 1X/DAY, ORAL
     Route: 048
     Dates: start: 20060701
  2. NO CONCOMITANT MEDICATION [Concomitant]

REACTIONS (2)
  - ADENOCARCINOMA OF THE CERVIX [None]
  - CERVIX CARCINOMA STAGE 0 [None]
